APPROVED DRUG PRODUCT: LEVOLEUCOVORIN CALCIUM
Active Ingredient: LEVOLEUCOVORIN CALCIUM
Strength: EQ 250MG BASE/25ML (EQ 10MG BASE/ML)
Dosage Form/Route: SOLUTION;INTRAVENOUS
Application: A211002 | Product #002
Applicant: MEITHEAL PHARMACEUTICALS INC
Approved: Aug 16, 2019 | RLD: No | RS: No | Type: DISCN